FAERS Safety Report 15952473 (Version 2)
Quarter: 2019Q1

REPORT INFORMATION
  Report Type: Spontaneous
  Country: US (occurrence: US)
  Receive Date: 20190212
  Receipt Date: 20190214
  Transmission Date: 20190417
  Serious: Yes (Other)
  Sender: FDA-Public Use
  Company Number: US-PFIZER INC-2019050806

PATIENT
  Age: 79 Year
  Sex: Male
  Weight: 72.56 kg

DRUGS (7)
  1. CHANTIX [Suspect]
     Active Substance: VARENICLINE TARTRATE
     Indication: SMOKING CESSATION THERAPY
     Dosage: 1 MG, 2X/DAY (ONE THE MORNING AND ONE AT NIGHT DAILY)
     Route: 048
     Dates: start: 20180911, end: 201901
  2. DIAZEPAM. [Concomitant]
     Active Substance: DIAZEPAM
     Indication: SLEEP DISORDER
     Dosage: 5MG, AS NEEDED (1/2 TABLET TAKEN BY MOUTH AS NEEDED USUALLY AT NIGHT)
     Route: 048
     Dates: start: 2009
  3. PANTOPRAZOLE [Concomitant]
     Active Substance: PANTOPRAZOLE
     Indication: GASTROOESOPHAGEAL REFLUX DISEASE
     Dosage: 40 MG, 1X/DAY
     Route: 048
  4. SYMBICORT [Concomitant]
     Active Substance: BUDESONIDE\FORMOTEROL FUMARATE DIHYDRATE
     Indication: DYSPNOEA
     Dosage: UNK, 1X/DAY
     Dates: start: 20180911
  5. METOCLOPRAMIDE. [Concomitant]
     Active Substance: METOCLOPRAMIDE
     Indication: ABDOMINAL DISCOMFORT
     Dosage: 5 MG, 3X/DAY (AFTER MEALS)
     Route: 048
     Dates: start: 201808
  6. ASPIRIN [ACETYLSALICYLIC ACID] [Concomitant]
     Active Substance: ASPIRIN
     Dosage: 325 MG, THREE TIMES WEEKLY
     Route: 048
  7. CHANTIX [Suspect]
     Active Substance: VARENICLINE TARTRATE
     Dosage: 1 MG, 2X/DAY (ONE THE MORNING AND ONE AT NIGHT DAILY)
     Route: 048
     Dates: start: 20190130

REACTIONS (5)
  - Parkinson^s disease [Recovering/Resolving]
  - Withdrawal syndrome [Recovering/Resolving]
  - Vomiting [Not Recovered/Not Resolved]
  - Anxiety [Recovering/Resolving]
  - Tremor [Unknown]

NARRATIVE: CASE EVENT DATE: 201901
